FAERS Safety Report 14893950 (Version 1)
Quarter: 2018Q2

REPORT INFORMATION
  Report Type: Spontaneous
  Country: KR (occurrence: KR)
  Receive Date: 20180514
  Receipt Date: 20180514
  Transmission Date: 20180711
  Serious: Yes (Hospitalization)
  Sender: FDA-Public Use
  Company Number: KR-ABBVIE-18P-090-2349099-00

PATIENT
  Age: 24 Year
  Sex: Female

DRUGS (7)
  1. BENZOTROPINE [Suspect]
     Active Substance: BENZTROPINE
     Indication: BIPOLAR I DISORDER
     Route: 065
  2. OLANZAPINE. [Suspect]
     Active Substance: OLANZAPINE
     Indication: BIPOLAR I DISORDER
     Route: 065
  3. VALPROATE SODIUM. [Suspect]
     Active Substance: VALPROATE SODIUM
     Indication: BIPOLAR I DISORDER
     Route: 065
  4. LITHIUM. [Suspect]
     Active Substance: LITHIUM
     Indication: BIPOLAR I DISORDER
     Route: 065
  5. RISPERIDONE. [Suspect]
     Active Substance: RISPERIDONE
     Indication: BIPOLAR I DISORDER
     Route: 065
  6. QUETIAPINE FUMARATE. [Suspect]
     Active Substance: QUETIAPINE FUMARATE
     Indication: BIPOLAR I DISORDER
     Route: 065
  7. PROPRANOLOL HYDROCHLORIDE. [Suspect]
     Active Substance: PROPRANOLOL HYDROCHLORIDE
     Indication: BIPOLAR I DISORDER
     Route: 065

REACTIONS (12)
  - Drooling [Unknown]
  - Gait disturbance [Unknown]
  - Dizziness [Unknown]
  - Mood swings [Unknown]
  - Alopecia [Unknown]
  - Mania [Unknown]
  - Drug resistance [Unknown]
  - Psychotic behaviour [Unknown]
  - Somnolence [Unknown]
  - Treatment noncompliance [Unknown]
  - Binge eating [Unknown]
  - Muscle rigidity [Unknown]
